FAERS Safety Report 6924048-8 (Version None)
Quarter: 2010Q3

REPORT INFORMATION
  Report Type: 
  Country: None (occurrence: None)
  Receive Date: 20100813
  Receipt Date: 20100804
  Transmission Date: 20110219
  Serious: Yes (Hospitalization)
  Sender: FDA-Public Use
  Company Number: CH-GENENTECH-302213

PATIENT
  Sex: Female
  Weight: 58 kg

DRUGS (7)
  1. RITUXIMAB [Suspect]
     Indication: RHEUMATOID ARTHRITIS
     Dosage: 1000 MG, UNK
     Route: 042
     Dates: start: 20080219, end: 20080304
  2. APRANAX [Suspect]
     Indication: PRODUCT USED FOR UNKNOWN INDICATION
     Dosage: UNK
     Route: 065
  3. ENBREL [Suspect]
     Indication: RHEUMATOID ARTHRITIS
     Dosage: 50 MG, 1/MONTH
     Route: 058
     Dates: start: 20100215, end: 20100531
  4. HUMIRA [Suspect]
     Indication: RHEUMATOID ARTHRITIS
     Dosage: 40 MG, 1/WEEK
     Route: 058
     Dates: start: 20060615, end: 20070301
  5. HUMIRA [Suspect]
     Dosage: 40 MG, 1/WEEK
     Route: 058
     Dates: start: 20090624, end: 20091212
  6. ARAVA [Suspect]
     Indication: RHEUMATOID ARTHRITIS
     Dosage: 20 MG, UNK
     Route: 048
     Dates: start: 20060206, end: 20070424
  7. METHOTREXATE SODIUM [Concomitant]
     Indication: RHEUMATOID ARTHRITIS
     Dosage: 20 MG, UNK
     Route: 048
     Dates: start: 20000601, end: 20060201

REACTIONS (3)
  - BREAST CANCER [None]
  - DIARRHOEA [None]
  - DRUG INTOLERANCE [None]
